FAERS Safety Report 24572301 (Version 1)
Quarter: 2024Q4

REPORT INFORMATION
  Report Type: Spontaneous
  Country: JP (occurrence: JP)
  Receive Date: 20241101
  Receipt Date: 20241101
  Transmission Date: 20250114
  Serious: Yes (Other)
  Sender: ALEXION PHARMACEUTICALS
  Company Number: JP-ASTRAZENECA-240102349_063010_P_1

PATIENT
  Age: 36 Year

DRUGS (18)
  1. DAPAGLIFLOZIN [Suspect]
     Active Substance: DAPAGLIFLOZIN
     Indication: Chronic kidney disease
     Dosage: 10 MILLIGRAM, QD
  2. DAPAGLIFLOZIN [Suspect]
     Active Substance: DAPAGLIFLOZIN
     Indication: Nephritis
     Dosage: 10 MILLIGRAM, QD
  3. DAPAGLIFLOZIN [Suspect]
     Active Substance: DAPAGLIFLOZIN
  4. SODIUM BICARBONATE [Concomitant]
     Active Substance: SODIUM BICARBONATE
     Dosage: DOSE UNKNOWN
     Route: 065
  5. SODIUM BICARBONATE [Concomitant]
     Active Substance: SODIUM BICARBONATE
     Dosage: DOSE UNKNOWN
     Route: 065
  6. SODIUM BICARBONATE [Concomitant]
     Active Substance: SODIUM BICARBONATE
     Dosage: DOSE UNKNOWN
     Route: 065
  7. METHIMAZOLE [Concomitant]
     Active Substance: METHIMAZOLE
     Dosage: UNK MILLIGRAM
     Route: 065
  8. METHIMAZOLE [Concomitant]
     Active Substance: METHIMAZOLE
     Dosage: DOSE UNKNOWN
     Route: 065
  9. METHIMAZOLE [Concomitant]
     Active Substance: METHIMAZOLE
     Dosage: DOSE UNKNOWN
     Route: 065
  10. DIPYRIDAMOLE [Concomitant]
     Active Substance: DIPYRIDAMOLE
     Route: 065
  11. DIPYRIDAMOLE [Concomitant]
     Active Substance: DIPYRIDAMOLE
     Dosage: 300 MILLIGRAM
     Route: 065
  12. DIPYRIDAMOLE [Concomitant]
     Active Substance: DIPYRIDAMOLE
     Dosage: 300 MILLIGRAM
     Route: 065
  13. ENALAPRIL [Concomitant]
     Active Substance: ENALAPRIL
     Route: 065
  14. ENALAPRIL [Concomitant]
     Active Substance: ENALAPRIL
     Route: 065
  15. ENALAPRIL [Concomitant]
     Active Substance: ENALAPRIL
  16. ENALAPRIL [Concomitant]
     Active Substance: ENALAPRIL
     Dosage: 1.25 MILLIGRAM
     Route: 065
  17. ENALAPRIL [Concomitant]
     Active Substance: ENALAPRIL
  18. ENALAPRIL [Concomitant]
     Active Substance: ENALAPRIL
     Dosage: 1.25 MILLIGRAM
     Route: 065

REACTIONS (1)
  - Graves^ disease [Recovered/Resolved]
